FAERS Safety Report 16005438 (Version 1)
Quarter: 2019Q1

REPORT INFORMATION
  Report Type: Spontaneous
  Country: US (occurrence: US)
  Receive Date: 20190226
  Receipt Date: 20190226
  Transmission Date: 20190418
  Serious: Yes (Hospitalization, Disabling)
  Sender: FDA-Public Use
  Company Number: US-PERRIGO-19US002237

PATIENT
  Age: 12 Year
  Sex: Female

DRUGS (4)
  1. PRINCIPEN [Suspect]
     Active Substance: AMPICILLIN TRIHYDRATE
     Indication: PRODUCT USED FOR UNKNOWN INDICATION
     Dosage: UNKNOWN, UNKNOWN (ACCORDING TO LABELED INSTRUCTIONS)
     Route: 048
     Dates: start: 20120619, end: 201206
  2. PENICILLIN NOS [Suspect]
     Active Substance: PENICILLIN
     Indication: PRODUCT USED FOR UNKNOWN INDICATION
     Dosage: UNKNOWN, UNKNOWN (ACCORDING TO LABELED INSTRUCTIONS)
     Route: 048
     Dates: start: 20120619, end: 201206
  3. IBUPROFEN. [Suspect]
     Active Substance: IBUPROFEN
     Indication: PYREXIA
     Dosage: UNKNOWN, UNKNOWN (ACCORDING TO LABELED INSTRUCTIONS)
     Route: 048
     Dates: start: 20120615, end: 201206
  4. MOTRIN IB [Suspect]
     Active Substance: IBUPROFEN
     Indication: PYREXIA
     Dosage: UNKNOWN, UNKNOWN (ACCORDING TO LABELED INSTRUCTIONS)
     Route: 048
     Dates: start: 20120615, end: 201206

REACTIONS (2)
  - Toxic epidermal necrolysis [Recovered/Resolved with Sequelae]
  - Stevens-Johnson syndrome [Recovered/Resolved with Sequelae]

NARRATIVE: CASE EVENT DATE: 20120620
